FAERS Safety Report 9710621 (Version 2)
Quarter: 2014Q1

REPORT INFORMATION
  Report Type: Spontaneous
  Country: US (occurrence: US)
  Receive Date: 20131126
  Receipt Date: 20140214
  Transmission Date: 20141002
  Serious: Yes (Hospitalization, Other)
  Sender: FDA-Public Use
  Company Number: US-BAYER-2013-143929

PATIENT
  Age: 14 Year
  Sex: Female

DRUGS (8)
  1. YAZ [Suspect]
  2. YASMIN [Suspect]
     Indication: MENSTRUATION IRREGULAR
  3. ADVAIR [Concomitant]
     Indication: ASTHMA
     Dosage: 100/50
  4. SINGULAIR [Concomitant]
     Indication: MULTIPLE ALLERGIES
     Dosage: 10 MG, UNK
  5. ZYRTEC [Concomitant]
     Indication: MULTIPLE ALLERGIES
     Dosage: 10 MG, UNK
  6. VERAPAMIL [Concomitant]
     Indication: MIGRAINE
     Dosage: 120 MG, UNK
  7. ALBUTEROL [Concomitant]
  8. ZANTAC [Concomitant]

REACTIONS (2)
  - Cholecystectomy [None]
  - Biliary dyskinesia [None]
